FAERS Safety Report 12257077 (Version 1)
Quarter: 2016Q2

REPORT INFORMATION
  Report Type: Spontaneous
  Country: GB (occurrence: GB)
  Receive Date: 20160412
  Receipt Date: 20160412
  Transmission Date: 20160815
  Serious: Yes (Hospitalization)
  Sender: FDA-Public Use
  Company Number: GB-MYLANLABS-2016M1014838

PATIENT

DRUGS (3)
  1. IBUPROFEN. [Suspect]
     Active Substance: IBUPROFEN
     Indication: HEADACHE
  2. IBUPROFEN. [Suspect]
     Active Substance: IBUPROFEN
     Indication: LEPTOSPIROSIS
     Route: 065
  3. IBUPROFEN. [Suspect]
     Active Substance: IBUPROFEN
     Indication: MYALGIA

REACTIONS (3)
  - Renal injury [Recovered/Resolved]
  - Oliguria [Recovered/Resolved]
  - Toxicity to various agents [Recovered/Resolved]
